FAERS Safety Report 7240207-1 (Version None)
Quarter: 2011Q1

REPORT INFORMATION
  Report Type: 
  Country: None (occurrence: None)
  Receive Date: 20110113
  Receipt Date: 20101229
  Transmission Date: 20110831
  Serious: Yes (Hospitalization)
  Sender: FDA-Public Use
  Company Number: 2010US000102

PATIENT
  Age: 26 Year
  Sex: Male

DRUGS (1)
  1. ENTEREG [Suspect]
     Indication: POSTOPERATIVE ILEUS
     Dosage: 12 MG; ; PO
     Route: 048
     Dates: start: 20090730, end: 20090802

REACTIONS (2)
  - ABDOMINAL PAIN [None]
  - MUSCLE STRAIN [None]
